FAERS Safety Report 4747752-9 (Version None)
Quarter: 2005Q3

REPORT INFORMATION
  Report Type: 
  Country: None (occurrence: None)
  Receive Date: 20050816
  Receipt Date: 20050726
  Transmission Date: 20060218
  Serious: Yes (Hospitalization)
  Sender: FDA-Public Use
  Company Number: 02100-USA-01-0129

PATIENT
  Age: 65 Year
  Sex: Female

DRUGS (9)
  1. PLETAL [Suspect]
     Indication: INTERMITTENT CLAUDICATION
     Dosage: 100 MG BID ORAL
     Route: 048
     Dates: start: 20011013, end: 20011029
  2. PLETAL [Suspect]
     Indication: INTERMITTENT CLAUDICATION
     Dosage: 50 MG BID ORAL
     Route: 048
     Dates: start: 20011013, end: 20011029
  3. PREVACID [Concomitant]
  4. COZAAR [Concomitant]
  5. DEXEDRINE [Concomitant]
  6. PREMARIN [Concomitant]
  7. DARVON [Concomitant]
  8. PLETAL [Suspect]
     Indication: INTERMITTENT CLAUDICATION
     Dosage: 100 MG BID ORAL
     Route: 048
     Dates: start: 20011102
  9. PLETAL [Suspect]
     Indication: INTERMITTENT CLAUDICATION
     Dosage: 50 MG BID ORAL
     Route: 048
     Dates: start: 20011102

REACTIONS (1)
  - GASTROINTESTINAL HAEMORRHAGE [None]
